FAERS Safety Report 5587908-9 (Version None)
Quarter: 2008Q1

REPORT INFORMATION
  Report Type: 
  Country: None (occurrence: None)
  Receive Date: 20080111
  Receipt Date: 20080103
  Transmission Date: 20080703
  Serious: Yes (Other)
  Sender: FDA-Public Use
  Company Number: IE-BAYER-200810026BNE

PATIENT
  Age: 41 Year
  Sex: Female

DRUGS (2)
  1. ULTRAVIST (PHARMACY BULK) [Suspect]
     Indication: COMPUTERISED TOMOGRAM
     Dosage: TOTAL DAILY DOSE: 90 ML
     Route: 042
     Dates: start: 20080103, end: 20080103
  2. GASTROGRAFIN [Suspect]
     Indication: COMPUTERISED TOMOGRAM
     Dosage: TOTAL DAILY DOSE: 1 L
     Route: 048
     Dates: start: 20080103, end: 20080103

REACTIONS (2)
  - PHARYNGEAL OEDEMA [None]
  - URTICARIA [None]
